FAERS Safety Report 18553814 (Version 1)
Quarter: 2020Q4

REPORT INFORMATION
  Report Type: Spontaneous
  Country: US (occurrence: US)
  Receive Date: 20201127
  Receipt Date: 20201127
  Transmission Date: 20210114
  Serious: No
  Sender: FDA-Public Use
  Company Number: US-009507513-2011USA011419

PATIENT
  Age: 36 Year
  Sex: Female

DRUGS (2)
  1. ETONOGESTREL (+) ETHINYL ESTRADIOL [Suspect]
     Active Substance: ETHINYL ESTRADIOL\ETONOGESTREL
     Dosage: UNK
     Dates: start: 202010, end: 202010
  2. NUVARING [Suspect]
     Active Substance: ETHINYL ESTRADIOL\ETONOGESTREL
     Dosage: UNK
     Dates: start: 202011

REACTIONS (4)
  - Nausea [Recovered/Resolved]
  - Inappropriate schedule of product administration [Unknown]
  - Headache [Unknown]
  - Withdrawal bleed [Unknown]

NARRATIVE: CASE EVENT DATE: 20201118
